FAERS Safety Report 4984741-3 (Version None)
Quarter: 2006Q2

REPORT INFORMATION
  Report Type: 
  Country: None (occurrence: None)
  Receive Date: 20060427
  Receipt Date: 20060124
  Transmission Date: 20061013
  Serious: Yes (Hospitalization, Disabling)
  Sender: FDA-Public Use
  Company Number: US-MERCK-0601USA02924

PATIENT
  Age: 69 Year
  Sex: Male
  Weight: 73 kg

DRUGS (5)
  1. VIOXX [Suspect]
     Indication: KNEE OPERATION
     Route: 048
     Dates: start: 20020101, end: 20040901
  2. BENICAR [Concomitant]
     Indication: HYPERTENSION
     Route: 065
  3. NIFEDIPINE [Concomitant]
     Indication: HYPERTENSION
     Route: 065
  4. ASPIRIN [Concomitant]
     Indication: HYPERTENSION
     Route: 065
  5. ASPIRIN [Concomitant]
     Indication: PAIN
     Route: 065

REACTIONS (5)
  - ATRIAL SEPTAL DEFECT [None]
  - CHEST PAIN [None]
  - CORONARY ARTERY DISEASE [None]
  - HYPERTENSION [None]
  - MYOCARDIAL ISCHAEMIA [None]
